FAERS Safety Report 6127118-X (Version None)
Quarter: 2009Q1

REPORT INFORMATION
  Report Type: 
  Country: None (occurrence: None)
  Receive Date: 20090320
  Receipt Date: 20090309
  Transmission Date: 20090719
  Serious: Yes (Hospitalization, Other)
  Sender: FDA-Public Use
  Company Number: US-PFIZER INC-2009180996

PATIENT
  Sex: Female

DRUGS (5)
  1. LYRICA [Interacting]
     Indication: BACK PAIN
  2. NEURONTIN [Suspect]
     Indication: BACK PAIN
  3. CRESTOR [Interacting]
  4. SKELAXIN [Concomitant]
  5. ULTRACET [Concomitant]

REACTIONS (3)
  - DRUG INTERACTION [None]
  - OEDEMA [None]
  - RENAL FAILURE [None]
